FAERS Safety Report 19905595 (Version 1)
Quarter: 2021Q4

REPORT INFORMATION
  Report Type: Report from Study
  Country: GR (occurrence: GR)
  Receive Date: 20211001
  Receipt Date: 20211001
  Transmission Date: 20220303
  Serious: Yes (Other)
  Sender: FDA-Public Use
  Company Number: GR-JNJFOC-20210950367

PATIENT
  Age: 35 Year
  Sex: Male
  Weight: 73 kg

DRUGS (1)
  1. INFLIXIMAB [Suspect]
     Active Substance: INFLIXIMAB
     Indication: Crohn^s disease
     Route: 042
     Dates: start: 2018

REACTIONS (3)
  - Intestinal stenosis [Unknown]
  - Streptococcal infection [Recovering/Resolving]
  - Incorrect dose administered [Unknown]
